FAERS Safety Report 25538671 (Version 1)
Quarter: 2025Q3

REPORT INFORMATION
  Report Type: Spontaneous
  Country: US (occurrence: US)
  Receive Date: 20250710
  Receipt Date: 20250710
  Transmission Date: 20251020
  Serious: No
  Sender: SANOFI AVENTIS
  Company Number: US-SA-2025SA192179

PATIENT
  Age: 42 Year
  Sex: Male

DRUGS (1)
  1. CAPRELSA [Suspect]
     Active Substance: VANDETANIB
     Indication: Thyroid cancer
     Dosage: 200 MG, QD
     Route: 048
     Dates: start: 20240715

REACTIONS (13)
  - Thyroid hormones decreased [Unknown]
  - Heart rate increased [Unknown]
  - Somnolence [Unknown]
  - Lacrimation increased [Unknown]
  - Apathy [Unknown]
  - Abdominal discomfort [Unknown]
  - Flatulence [Unknown]
  - Constipation [Unknown]
  - Asthenia [Unknown]
  - Blood pressure increased [Unknown]
  - Dry skin [Unknown]
  - Pruritus [Unknown]
  - Abdominal pain upper [Unknown]
